FAERS Safety Report 21532990 (Version 3)
Quarter: 2023Q1

REPORT INFORMATION
  Report Type: Report from Study
  Country: US (occurrence: US)
  Receive Date: 20221101
  Receipt Date: 20230202
  Transmission Date: 20230417
  Serious: Yes (Other)
  Sender: FDA-Public Use
  Company Number: US-JNJFOC-20221055980

PATIENT
  Age: 19 Year
  Sex: Female
  Weight: 51.302 kg

DRUGS (2)
  1. INFLIXIMAB [Suspect]
     Active Substance: INFLIXIMAB
     Indication: Inflammatory bowel disease
     Dosage: DISCONTINUED ON UNKNOWN DATE DUE TO UNKNOWN REASON (DATE OF LAST ADMINISTRATION WAS ON 21-NOV-2018
     Route: 041
     Dates: start: 20131030
  2. STELARA [Concomitant]
     Active Substance: USTEKINUMAB
     Indication: Crohn^s disease

REACTIONS (1)
  - Von Willebrand^s disease [Recovered/Resolved]

NARRATIVE: CASE EVENT DATE: 20220801
